FAERS Safety Report 17275561 (Version 2)
Quarter: 2020Q2

REPORT INFORMATION
  Report Type: Spontaneous
  Country: JP (occurrence: JP)
  Receive Date: 20200116
  Receipt Date: 20200408
  Transmission Date: 20200713
  Serious: Yes (Death, Other)
  Sender: FDA-Public Use
  Company Number: JP-ROCHE-2523915

PATIENT
  Age: 89 Year
  Sex: Female

DRUGS (29)
  1. CEFAMEZIN ALPHA [Concomitant]
     Active Substance: CEFAZOLIN SODIUM
  2. FERROUS CITRATE [Concomitant]
     Active Substance: FERROUS CITRATE
  3. ISOSORBIDE DINITRATE. [Concomitant]
     Active Substance: ISOSORBIDE DINITRATE
  4. TRANEXAMIC ACID. [Concomitant]
     Active Substance: TRANEXAMIC ACID
  5. ISOTONIC SODIUM CHLORIDE SOLUTION [Concomitant]
     Active Substance: SODIUM CHLORIDE
  6. DENOSINE [GANCICLOVIR] [Suspect]
     Active Substance: GANCICLOVIR
     Indication: CYTOMEGALOVIRUS ENTEROCOLITIS
     Route: 041
     Dates: start: 20191213, end: 20191219
  7. BETAHISTINE MESILATE [Concomitant]
     Active Substance: BETAHISTINE MESILATE
  8. POTACOL R [Concomitant]
     Active Substance: CALCIUM CHLORIDE\MALTOSE\POTASSIUM CHLORIDE\SODIUM CHLORIDE\SODIUM LACTATE
  9. CARBAZOCHROME SULFONATE NA [Concomitant]
  10. ADETPHOS [Concomitant]
     Active Substance: ADENOSINE TRIPHOSPHATE
  11. FUNGIZONE [Concomitant]
     Active Substance: AMPHOTERICIN B
  12. CALFINA [ALFACALCIDOL] [Concomitant]
     Active Substance: ALFACALCIDOL
  13. ESOMEPRAZOLE. [Concomitant]
     Active Substance: ESOMEPRAZOLE MAGNESIUM
  14. REBAMIPIDE [Concomitant]
     Active Substance: REBAMIPIDE
  15. ATORVASTATIN [Concomitant]
     Active Substance: ATORVASTATIN
  16. GLUCOSE [Concomitant]
     Active Substance: DEXTROSE
  17. FUROSEMIDE. [Concomitant]
     Active Substance: FUROSEMIDE
  18. PREDNISOLONE. [Concomitant]
     Active Substance: PREDNISOLONE
  19. TERIBONE [Concomitant]
     Active Substance: TERIPARATIDE ACETATE
  20. HAEMOLEX [Concomitant]
  21. ASPARA POTASSIUM [Concomitant]
     Active Substance: POTASSIUM ASPARTATE
  22. TRIAZOLAM. [Concomitant]
     Active Substance: TRIAZOLAM
  23. ITOROL [Concomitant]
     Active Substance: ISOSORBIDE MONONITRATE
  24. PENTASA [Concomitant]
     Active Substance: MESALAMINE
  25. BELSOMRA [Concomitant]
     Active Substance: SUVOREXANT
  26. LACTEC [Concomitant]
     Active Substance: CALCIUM CHLORIDE ANHYDROUS\POTASSIUM CHLORIDE\SODIUM CHLORIDE\SODIUM LACTATE
  27. WATER FOR INJECTION [Concomitant]
     Active Substance: WATER
  28. VALIXA [Suspect]
     Active Substance: VALGANCICLOVIR
     Indication: PRODUCT USED FOR UNKNOWN INDICATION
     Route: 048
     Dates: start: 20191224
  29. NICORANDIL [Concomitant]
     Active Substance: NICORANDIL

REACTIONS (2)
  - Hallucination [Not Recovered/Not Resolved]
  - Hallucination, auditory [Not Recovered/Not Resolved]

NARRATIVE: CASE EVENT DATE: 20191218
